FAERS Safety Report 8224656-0 (Version None)
Quarter: 2012Q1

REPORT INFORMATION
  Report Type: 
  Country: None (occurrence: None)
  Receive Date: 20120321
  Receipt Date: 20120315
  Transmission Date: 20120608
  Serious: Yes (Other)
  Sender: FDA-Public Use
  Company Number: CA-PFIZER INC-2011115398

PATIENT
  Age: 13 Month
  Sex: Male
  Weight: 11.8 kg

DRUGS (2)
  1. XYNTHA [Suspect]
     Dosage: 500 IU, WEEKLY
     Dates: start: 20110201, end: 20110512
  2. XYNTHA [Suspect]
     Indication: PROPHYLAXIS
     Dosage: 50 IU/KG, WEEKLY
     Dates: start: 20101201

REACTIONS (3)
  - VIRAL INFECTION [None]
  - CONVULSION [None]
  - FACTOR VIII INHIBITION [None]
